FAERS Safety Report 5789230-4 (Version None)
Quarter: 2008Q2

REPORT INFORMATION
  Report Type: 
  Country: None (occurrence: None)
  Receive Date: 20080626
  Receipt Date: 20080304
  Transmission Date: 20081010
  Serious: No
  Sender: FDA-Public Use
  Company Number: US-ASTRAZENECA-2008UW02545

PATIENT
  Age: 81 Year
  Weight: 54.4 kg

DRUGS (5)
  1. PULMICORT FLEXHALER [Suspect]
     Indication: EMPHYSEMA
     Dosage: 180 UG, 1 PUFF BID
     Route: 055
     Dates: start: 20080206
  2. SPIRIVA [Concomitant]
  3. VYTORIN [Concomitant]
  4. ASMANEX TWISTHALER [Concomitant]
  5. VITAMIN CAP [Concomitant]

REACTIONS (1)
  - DYSPNOEA [None]
